FAERS Safety Report 6432954-6 (Version None)
Quarter: 2009Q4

REPORT INFORMATION
  Report Type: 
  Country: None (occurrence: None)
  Receive Date: 20091109
  Receipt Date: 20091105
  Transmission Date: 20100525
  Serious: Yes (Other)
  Sender: FDA-Public Use
  Company Number: CH-BRISTOL-MYERS SQUIBB COMPANY-14845606

PATIENT
  Sex: Female

DRUGS (2)
  1. ORENCIA [Suspect]
  2. METHOTREXATE [Suspect]

REACTIONS (1)
  - LEUKOPENIA [None]
